FAERS Safety Report 17088450 (Version 2)
Quarter: 2020Q1

REPORT INFORMATION
  Report Type: Spontaneous
  Country: DE (occurrence: DE)
  Receive Date: 20191128
  Receipt Date: 20200219
  Transmission Date: 20200409
  Serious: Yes (Hospitalization, Other)
  Sender: FDA-Public Use
  Company Number: DE-JNJFOC-20191137604

PATIENT
  Age: 60 Year
  Sex: Male

DRUGS (4)
  1. SOTALOL. [Concomitant]
     Active Substance: SOTALOL
     Dosage: 80 MG, BID, 1-0-1-0
  2. APIXABAN [Concomitant]
     Active Substance: APIXABAN
     Indication: ANTICOAGULANT THERAPY
     Dosage: 5 MG, BID, 1-0-1-0
  3. RIVAROXABAN [Suspect]
     Active Substance: RIVAROXABAN
     Indication: ANTICOAGULANT THERAPY
  4. RIVAROXABAN [Suspect]
     Active Substance: RIVAROXABAN
     Indication: THROMBOSIS PROPHYLAXIS
     Dosage: 1 DF
     Route: 048
     Dates: end: 20170809

REACTIONS (4)
  - Cerebral ischaemia [Recovered/Resolved with Sequelae]
  - Herpes zoster [Unknown]
  - Visual impairment [Unknown]
  - Tachycardia [Unknown]

NARRATIVE: CASE EVENT DATE: 20170809
